FAERS Safety Report 8546606-X (Version None)
Quarter: 2012Q3

REPORT INFORMATION
  Report Type: 
  Country: None (occurrence: None)
  Receive Date: 20120727
  Receipt Date: 20111229
  Transmission Date: 20120928
  Serious: No
  Sender: FDA-Public Use
  Company Number: US-ASTRAZENECA-2012SE00060

PATIENT
  Age: 33 Year
  Sex: Female
  Weight: 122.5 kg

DRUGS (15)
  1. SEROQUEL [Suspect]
     Route: 048
  2. SEROQUEL [Suspect]
     Route: 048
  3. HYDROCHLOROTHIAZIDE [Concomitant]
     Indication: HYPERTENSION
  4. SEROQUEL [Suspect]
     Route: 048
  5. SEROQUEL [Suspect]
     Indication: ANXIETY
     Route: 048
  6. SEROQUEL [Suspect]
     Indication: BIPOLAR DISORDER
     Route: 048
  7. SEROQUEL [Suspect]
     Route: 048
  8. SEROQUEL [Suspect]
     Route: 048
  9. SEROQUEL [Suspect]
     Indication: DEPRESSION
     Route: 048
  10. SEROQUEL [Suspect]
     Route: 048
  11. SEROQUEL [Suspect]
     Route: 048
  12. LEVOPRO [Concomitant]
     Indication: MENTAL DISORDER
  13. SEROQUEL [Suspect]
     Indication: PSYCHOTIC DISORDER
     Route: 048
  14. SEROQUEL [Suspect]
     Route: 048
  15. AMOXICILLIN/PENICILLIN [Concomitant]
     Indication: INFECTION

REACTIONS (8)
  - MOOD SWINGS [None]
  - OBESITY [None]
  - MENORRHAGIA [None]
  - DRUG PRESCRIBING ERROR [None]
  - MUSCLE SPASMS [None]
  - DRUG INEFFECTIVE [None]
  - WRONG TECHNIQUE IN DRUG USAGE PROCESS [None]
  - ABNORMAL BEHAVIOUR [None]
